FAERS Safety Report 7440499-X (Version None)
Quarter: 2011Q2

REPORT INFORMATION
  Report Type: 
  Country: None (occurrence: None)
  Receive Date: 20110427
  Receipt Date: 20110406
  Transmission Date: 20111010
  Serious: No
  Sender: FDA-Public Use
  Company Number: US-B.I. PHARMACEUTICALS,INC./RIDGEFIELD-2011-BP-07246BP

PATIENT
  Age: 60 Year

DRUGS (3)
  1. ALPRAZOLAM [Concomitant]
     Indication: ANXIETY
     Dosage: 0.25 MG
  2. GLIMEPIRIDE [Concomitant]
     Indication: DIABETES MELLITUS
  3. SPIRIVA [Suspect]
     Indication: CHRONIC OBSTRUCTIVE PULMONARY DISEASE
     Dosage: 18 MCG
     Route: 055
     Dates: start: 20101201

REACTIONS (2)
  - NERVOUSNESS [None]
  - PRURITUS [None]
